APPROVED DRUG PRODUCT: BYSTOLIC
Active Ingredient: NEBIVOLOL HYDROCHLORIDE
Strength: EQ 5MG BASE
Dosage Form/Route: TABLET;ORAL
Application: N021742 | Product #003 | TE Code: AB
Applicant: ALLERGAN SALES LLC
Approved: Dec 17, 2007 | RLD: Yes | RS: No | Type: RX